FAERS Safety Report 9105648 (Version 2)
Quarter: 2013Q1

REPORT INFORMATION
  Report Type: Spontaneous
  Country: US (occurrence: US)
  Receive Date: 20130221
  Receipt Date: 20130221
  Transmission Date: 20140127
  Serious: Yes (Death, Hospitalization)
  Sender: FDA-Public Use
  Company Number: US-TEVA-331721USA

PATIENT
  Age: 61 Year
  Sex: Female

DRUGS (20)
  1. TREANDA [Suspect]
     Indication: PLASMA CELL MYELOMA
     Dosage: 2.5 MG/M2 DAILY;
     Route: 042
     Dates: start: 20110312
  2. LENALIDOMIDE [Suspect]
     Indication: PLASMA CELL MYELOMA
  3. DEXAMETHASONE [Suspect]
     Indication: PLASMA CELL MYELOMA
     Dosage: 2.8571 MILLIGRAM DAILY;
  4. POMALIDOMIDE [Suspect]
  5. LORATADINE [Concomitant]
     Dosage: 10 MILLIGRAM DAILY;
     Route: 048
  6. ACETYLSALICYLIC ACID [Concomitant]
     Dosage: 325 MILLIGRAM DAILY;
     Route: 048
  7. NEFAZODONE HYDROCHLORIDE [Concomitant]
     Dosage: 150 MILLIGRAM DAILY;
     Route: 048
  8. TRAZODONE [Concomitant]
     Dosage: 50 MILLIGRAM DAILY;
     Route: 048
  9. ACICLOVIR [Concomitant]
     Dosage: 800 MILLIGRAM DAILY;
     Route: 048
  10. RANITIDINE HYDROCHLORIDE [Concomitant]
     Dosage: 150 MILLIGRAM DAILY;
     Route: 048
  11. MULTIVITAMIN [Concomitant]
  12. PYRIDOXINE HYDROCHLORIDE [Concomitant]
  13. CYCLOBENZAPRINE HYDROCHLORIDE [Concomitant]
     Route: 048
  14. MAGNESIUM HYDROXIDE [Concomitant]
     Indication: CONSTIPATION
  15. TYLOX [Concomitant]
     Indication: PAIN
     Dosage: 1300 MILLIGRAM DAILY;
  16. PAMIDRONATE DISODIUM [Concomitant]
     Dates: end: 20110308
  17. LEVOFLOXACIN [Concomitant]
  18. POTASSIUM CHLORIDE [Concomitant]
     Dosage: 40 MILLIEQUIVALENTS DAILY;
     Route: 048
  19. FENTANYL [Concomitant]
     Dosage: 16.6667 MICROGRAM DAILY;
     Route: 062
  20. VICODIN [Concomitant]

REACTIONS (2)
  - Plasma cell myeloma [Fatal]
  - Hypercalcaemia [Not Recovered/Not Resolved]
